FAERS Safety Report 16247243 (Version 1)
Quarter: 2019Q2

REPORT INFORMATION
  Report Type: Spontaneous
  Country: US (occurrence: US)
  Receive Date: 20190325
  Receipt Date: 20190325
  Transmission Date: 20190711
  Serious: Yes (Death)
  Sender: FDA-Public Use
  Company Number: None

PATIENT
  Age: 63 Year
  Sex: Male

DRUGS (1)
  1. IMATINIB TAB (X30) [Suspect]
     Active Substance: IMATINIB MESYLATE
     Dates: start: 201902

REACTIONS (1)
  - Death [None]

NARRATIVE: CASE EVENT DATE: 20190322
